FAERS Safety Report 11875931 (Version 2)
Quarter: 2016Q1

REPORT INFORMATION
  Report Type: Spontaneous
  Country: AU (occurrence: AU)
  Receive Date: 20151229
  Receipt Date: 20160107
  Transmission Date: 20160526
  Serious: Yes (Hospitalization)
  Sender: FDA-Public Use
  Company Number: AU-FRESENIUS KABI-FK201506872

PATIENT
  Age: 39 Year
  Sex: Female

DRUGS (1)
  1. FLUOROURACIL (MANUFACTURER UNKNOWN) [Suspect]
     Active Substance: FLUOROURACIL
     Indication: PSEUDOMYXOMA PERITONEI
     Route: 033

REACTIONS (3)
  - Rectal haemorrhage [Recovered/Resolved]
  - Enterocolitis [Recovered/Resolved]
  - Haematotoxicity [Recovered/Resolved]
